FAERS Safety Report 21260942 (Version 2)
Quarter: 2022Q3

REPORT INFORMATION
  Report Type: Report from Study
  Country: CA (occurrence: CA)
  Receive Date: 20220826
  Receipt Date: 20220830
  Transmission Date: 20221026
  Serious: Yes (Death, Other)
  Sender: FDA-Public Use
  Company Number: CA-GILEAD-2022-0581202

PATIENT
  Sex: Female

DRUGS (4)
  1. SACITUZUMAB GOVITECAN [Suspect]
     Active Substance: SACITUZUMAB GOVITECAN
     Indication: Triple negative breast cancer
     Dosage: 546 MG
     Route: 042
     Dates: start: 20211216
  2. DEXAMETHASONE [Concomitant]
     Active Substance: DEXAMETHASONE
     Indication: Premedication
     Dosage: 20 MG
  3. DEXAMETHASONE [Concomitant]
     Active Substance: DEXAMETHASONE
     Dosage: 20 MG PIV (PRE-MEDICATION PRIOR TO TRODELVY)
  4. ATROPINE [Concomitant]
     Active Substance: ATROPINE
     Indication: Premedication
     Dosage: 0.3 MG, (PRE-MEDICATION PRIOR TO TRODELVY)
     Route: 058

REACTIONS (3)
  - Death [Fatal]
  - Fatigue [Unknown]
  - Intentional dose omission [Not Recovered/Not Resolved]
